FAERS Safety Report 25354587 (Version 2)
Quarter: 2025Q2

REPORT INFORMATION
  Report Type: Report from Study
  Country: TW (occurrence: TW)
  Receive Date: 20250524
  Receipt Date: 20250610
  Transmission Date: 20250717
  Serious: Yes (Hospitalization)
  Sender: ABBVIE
  Company Number: TW-ABBVIE-6287494

PATIENT
  Age: 31 Year
  Sex: Male
  Weight: 97 kg

DRUGS (7)
  1. SKYRIZI [Suspect]
     Active Substance: RISANKIZUMAB-RZAA
     Indication: Crohn^s disease
     Route: 058
     Dates: start: 20241209
  2. IMURAN [Concomitant]
     Active Substance: AZATHIOPRINE
     Indication: Crohn^s disease
     Route: 048
     Dates: start: 20250506
  3. IMURAN [Concomitant]
     Active Substance: AZATHIOPRINE
     Indication: Crohn^s disease
     Route: 048
     Dates: end: 20241110
  4. Ferrian [Concomitant]
     Indication: Anaemia
     Route: 048
     Dates: start: 20250508, end: 20250524
  5. SKYRIZI [Suspect]
     Active Substance: RISANKIZUMAB-RZAA
     Indication: Crohn^s disease
     Route: 042
     Dates: start: 2024, end: 2024
  6. SKYRIZI [Suspect]
     Active Substance: RISANKIZUMAB-RZAA
     Indication: Crohn^s disease
     Route: 042
     Dates: start: 20241111, end: 20241111
  7. SKYRIZI [Suspect]
     Active Substance: RISANKIZUMAB-RZAA
     Indication: Crohn^s disease
     Route: 042
     Dates: start: 20240916, end: 20240916

REACTIONS (15)
  - Small intestinal perforation [Recovered/Resolved]
  - Peritonitis [Recovered/Resolved]
  - Abdominal pain lower [Unknown]
  - Crohn^s disease [Unknown]
  - Mass [Unknown]
  - Abdominal abscess [Unknown]
  - Inflammation [Unknown]
  - Splenomegaly [Unknown]
  - Abscess intestinal [Unknown]
  - Atelectasis [Unknown]
  - Faecaloma [Unknown]
  - Central obesity [Unknown]
  - Ascites [Unknown]
  - Fistula of small intestine [Unknown]
  - Gastrointestinal necrosis [Unknown]

NARRATIVE: CASE EVENT DATE: 20250101
